FAERS Safety Report 7702455-3 (Version None)
Quarter: 2011Q3

REPORT INFORMATION
  Report Type: 
  Country: None (occurrence: None)
  Receive Date: 20110823
  Receipt Date: 20110817
  Transmission Date: 20111222
  Serious: Yes (Hospitalization)
  Sender: FDA-Public Use
  Company Number: DE-RANBAXY-2009RR-20545

PATIENT
  Age: 42 Year
  Sex: Male
  Weight: 86 kg

DRUGS (9)
  1. VIAGRA [Concomitant]
     Indication: ERECTILE DYSFUNCTION
     Dosage: 25 MG, UNK
     Route: 048
     Dates: start: 20050101
  2. JANUVIA [Suspect]
     Indication: TYPE 2 DIABETES MELLITUS
     Dosage: 100 MG, QD
     Route: 048
     Dates: start: 20070101, end: 20081023
  3. PANTOPRAZOLE [Concomitant]
     Indication: NAUSEA
     Dosage: 40 MG, UNK
     Route: 048
     Dates: start: 20081022, end: 20081023
  4. FLUPIRTINE MALEATE [Suspect]
     Indication: PAIN
     Dosage: 200 MG, QD
     Route: 048
     Dates: start: 20080717, end: 20081016
  5. IBUPROFEN [Suspect]
     Indication: PAIN
     Dosage: 800 MG, UNK
     Route: 048
     Dates: start: 20081019, end: 20081021
  6. IBUPROFEN [Suspect]
     Dosage: 800 MG, UNK
     Dates: start: 20081021
  7. SIMAVASTATIN [Suspect]
     Indication: HYPERCHOLESTEROLAEMIA
     Dosage: 20 MG, QD
     Route: 048
     Dates: start: 20080701, end: 20081023
  8. METFORMIN HCL [Concomitant]
     Indication: TYPE 2 DIABETES MELLITUS
     Dosage: 100 MG, BID
     Route: 048
     Dates: start: 20030101, end: 20081023
  9. DICLOFENAC SODIUM [Suspect]
     Indication: PAIN
     Dosage: 50 MG, BID
     Route: 048
     Dates: start: 20081017, end: 20081018

REACTIONS (1)
  - HEPATIC ENZYME INCREASED [None]
